FAERS Safety Report 15604781 (Version 1)
Quarter: 2018Q4

REPORT INFORMATION
  Report Type: Spontaneous
  Country: US (occurrence: US)
  Receive Date: 20181109
  Receipt Date: 20181109
  Transmission Date: 20190205
  Serious: No
  Sender: FDA-Public Use
  Company Number: None

PATIENT
  Age: 31 Year
  Sex: Female
  Weight: 52.62 kg

DRUGS (1)
  1. MULTIHANCE [Suspect]
     Active Substance: GADOBENATE DIMEGLUMINE

REACTIONS (3)
  - Pruritus [None]
  - Urticaria [None]
  - Feeling hot [None]

NARRATIVE: CASE EVENT DATE: 20181106
